FAERS Safety Report 22622931 (Version 2)
Quarter: 2023Q2

REPORT INFORMATION
  Report Type: Other
  Country: KW (occurrence: None)
  Receive Date: 20230621
  Receipt Date: 20230626
  Transmission Date: 20230722
  Serious: Yes (Death, Hospitalization)
  Sender: FDA-Public Use
  Company Number: KW-ROCHE-3370160

PATIENT
  Age: 57 Year
  Sex: Female

DRUGS (2)
  1. RITUXIMAB [Suspect]
     Active Substance: RITUXIMAB
     Indication: Rheumatoid arthritis
     Route: 065
  2. METHYLPREDNISOLONE [Concomitant]
     Active Substance: METHYLPREDNISOLONE
     Indication: Cytokine storm
     Route: 042

REACTIONS (2)
  - COVID-19 [Fatal]
  - Cardiac arrest [Fatal]
